FAERS Safety Report 21697085 (Version 1)
Quarter: 2022Q4

REPORT INFORMATION
  Report Type: Report from Study
  Country: US (occurrence: US)
  Receive Date: 20221208
  Receipt Date: 20221208
  Transmission Date: 20230113
  Serious: No
  Sender: FDA-Public Use
  Company Number: US-ABBVIE-4182220

PATIENT
  Age: 30 Year
  Sex: Male

DRUGS (2)
  1. SKYRIZI [Suspect]
     Active Substance: RISANKIZUMAB-RZAA
     Indication: Psoriasis
     Dosage: DOSING SKYRIZI 150MG WEEK 0, WEEK 4 AND EVERY 12 WEEKS THEREAFTER; FORM STRENGTH: 150 MG; THE EVE...
     Route: 058
     Dates: start: 20220927
  2. SKYRIZI [Suspect]
     Active Substance: RISANKIZUMAB-RZAA
     Indication: Psoriatic arthropathy

REACTIONS (2)
  - Pain [Unknown]
  - Irritability [Unknown]

NARRATIVE: CASE EVENT DATE: 20221026
